FAERS Safety Report 5825920-2 (Version None)
Quarter: 2008Q3

REPORT INFORMATION
  Report Type: 
  Country: None (occurrence: None)
  Receive Date: 20080729
  Receipt Date: 20080722
  Transmission Date: 20090109
  Serious: Yes (Hospitalization)
  Sender: FDA-Public Use
  Company Number: PHEH2008US06578

PATIENT
  Sex: Male

DRUGS (2)
  1. FEMARA [Suspect]
     Dosage: 6-8 TABLETS
     Route: 048
  2. IPECAC TAB [Suspect]

REACTIONS (4)
  - ACCIDENTAL EXPOSURE [None]
  - DEHYDRATION [None]
  - LETHARGY [None]
  - VOMITING [None]
